FAERS Safety Report 10229733 (Version 1)
Quarter: 2014Q2

REPORT INFORMATION
  Report Type: Report from Study
  Country: BR (occurrence: BR)
  Receive Date: 20140611
  Receipt Date: 20140611
  Transmission Date: 20141212
  Serious: Yes (Other)
  Sender: FDA-Public Use
  Company Number: PHHY2014BR071154

PATIENT
  Sex: Female
  Weight: 68 kg

DRUGS (11)
  1. DIOVAN [Suspect]
     Indication: HYPERTENSION
     Dosage: 1 DF, QD (IN MORNING)
     Route: 048
     Dates: start: 1994, end: 1995
  2. AAS [Suspect]
  3. SUSTRATE [Suspect]
  4. RASILEZ [Concomitant]
     Indication: HYPERTENSION
     Dosage: UNK 300 MG
  5. CONCOR [Concomitant]
     Indication: HYPERTENSION
     Dosage: UNK 2.5 MG, UKN
  6. JANUMET [Concomitant]
     Indication: DIABETES MELLITUS
     Dosage: UNK (850/50 MG), UKN
  7. CLOPIN [Concomitant]
     Dosage: UNK 75 MG
  8. AZUKON [Concomitant]
     Indication: DIABETES MELLITUS
     Dosage: UNK 30 MG, UKN
  9. LEVOID [Concomitant]
     Indication: THYROID DISORDER
     Dosage: UNK 112 UG, UNK
     Dates: start: 2006
  10. LEXOTAN [Concomitant]
     Indication: ANXIETY
     Dosage: UNK 3 MG, UNK
  11. VYTORIN [Concomitant]
     Indication: BLOOD CHOLESTEROL ABNORMAL

REACTIONS (3)
  - Joint swelling [Recovered/Resolved]
  - Oedema peripheral [Recovered/Resolved]
  - Hypersensitivity [Unknown]
